FAERS Safety Report 5243924-8 (Version None)
Quarter: 2007Q1

REPORT INFORMATION
  Report Type: 
  Country: None (occurrence: None)
  Receive Date: 20070215
  Receipt Date: 20070131
  Transmission Date: 20070707
  Serious: Yes (Hospitalization)
  Sender: FDA-Public Use
  Company Number: 8021853

PATIENT
  Age: 54 Year
  Sex: Female

DRUGS (1)
  1. KEPPRA [Suspect]
     Dosage: 1000 MG 2/D
     Dates: start: 20000101

REACTIONS (4)
  - CONVERSION DISORDER [None]
  - HOSTILITY [None]
  - SCREAMING [None]
  - UNEVALUABLE EVENT [None]
